FAERS Safety Report 8261690-9 (Version None)
Quarter: 2012Q2

REPORT INFORMATION
  Report Type: 
  Country: None (occurrence: None)
  Receive Date: 20120405
  Receipt Date: 20120327
  Transmission Date: 20120825
  Serious: Yes (Hospitalization)
  Sender: FDA-Public Use
  Company Number: FR-ELI_LILLY_AND_COMPANY-FR201112001261

PATIENT
  Sex: Female
  Weight: 55 kg

DRUGS (6)
  1. FORZAAR [Concomitant]
     Dosage: 1 DF, QD
  2. ACETAMINOPHEN [Concomitant]
     Dosage: 3 DF, QD
  3. TRAMADOL HCL [Concomitant]
     Dosage: 3 DF, QD
  4. CALCIUM CARBONATE [Concomitant]
     Dosage: 1 DF, QD
  5. FORTEO [Suspect]
     Indication: OSTEOPOROSIS
     Dosage: 20 UG, QD
     Route: 058
     Dates: start: 20110111
  6. VITAMIN D [Concomitant]
     Indication: OSTEOPOROSIS
     Dosage: 1 DF, EVERY 3 MONTHS

REACTIONS (4)
  - HUMERUS FRACTURE [None]
  - THORACIC VERTEBRAL FRACTURE [None]
  - FALL [None]
  - LUMBAR VERTEBRAL FRACTURE [None]
